FAERS Safety Report 24862193 (Version 1)
Quarter: 2025Q1

REPORT INFORMATION
  Report Type: Spontaneous
  Country: IN (occurrence: IN)
  Receive Date: 20250120
  Receipt Date: 20250120
  Transmission Date: 20250408
  Serious: Yes (Life-Threatening, Other)
  Sender: PADAGIS
  Company Number: IN-PADAGIS-2025PAD00031

PATIENT

DRUGS (2)
  1. MESALAMINE [Interacting]
     Active Substance: MESALAMINE
     Indication: Colitis ulcerative
     Route: 065
  2. WARFARIN [Suspect]
     Active Substance: WARFARIN
     Indication: Anticoagulant therapy
     Route: 048

REACTIONS (3)
  - Gastrointestinal haemorrhage [Unknown]
  - Anaemia [Unknown]
  - Drug interaction [Unknown]

NARRATIVE: CASE EVENT DATE: 20240801
